FAERS Safety Report 5760378-3 (Version None)
Quarter: 2008Q2

REPORT INFORMATION
  Report Type: 
  Country: None (occurrence: None)
  Receive Date: 20080605
  Receipt Date: 20080526
  Transmission Date: 20081010
  Serious: Yes (Hospitalization)
  Sender: FDA-Public Use
  Company Number: JP-PFIZER INC-2008031805

PATIENT
  Sex: Female
  Weight: 54.8 kg

DRUGS (17)
  1. CELECOX [Suspect]
     Indication: PAIN
     Route: 048
     Dates: start: 20080322, end: 20080331
  2. FLUITRAN [Concomitant]
     Route: 048
     Dates: start: 20080322, end: 20080331
  3. CYTOTEC [Concomitant]
     Route: 048
     Dates: start: 20080322, end: 20080331
  4. RISEDRONATE SODIUM HYDRATE [Concomitant]
     Route: 048
     Dates: start: 20080202, end: 20080331
  5. LORCAM [Concomitant]
     Route: 048
     Dates: start: 20070918, end: 20080322
  6. APLACE [Concomitant]
     Route: 048
     Dates: start: 20070918, end: 20080322
  7. NEUROTROPIN [Concomitant]
     Route: 048
     Dates: start: 20070918, end: 20080322
  8. RABEPRAZOLE SODIUM [Concomitant]
     Route: 048
     Dates: start: 20060928, end: 20080322
  9. MUCOSTA [Concomitant]
     Route: 048
     Dates: start: 20060928, end: 20080322
  10. ESPERAN [Concomitant]
     Route: 048
     Dates: start: 20060928, end: 20080322
  11. NAUZELIN [Concomitant]
     Route: 048
     Dates: start: 20060928, end: 20080322
  12. GASTROM [Concomitant]
     Route: 048
     Dates: start: 20060928, end: 20080322
  13. SOLON [Concomitant]
     Route: 048
     Dates: start: 20060928, end: 20080322
  14. BIOFERMIN [Concomitant]
     Route: 048
     Dates: start: 20080322, end: 20080331
  15. STOMILASE [Concomitant]
     Route: 048
     Dates: start: 20080322, end: 20080331
  16. KETOPROFEN [Concomitant]
     Route: 062
     Dates: start: 20070914, end: 20080331
  17. FLURBIPROFEN [Concomitant]
     Route: 062
     Dates: start: 20071119, end: 20080331

REACTIONS (5)
  - DERMATITIS EXFOLIATIVE [None]
  - DRUG ERUPTION [None]
  - MUSCULAR WEAKNESS [None]
  - PYREXIA [None]
  - RASH [None]
